FAERS Safety Report 6656240-4 (Version None)
Quarter: 2010Q1

REPORT INFORMATION
  Report Type: 
  Country: None (occurrence: None)
  Receive Date: 20100326
  Receipt Date: 20100326
  Transmission Date: 20100710
  Serious: Yes (Life-Threatening, Hospitalization)
  Sender: FDA-Public Use
  Company Number: None

PATIENT
  Sex: Male
  Weight: 109.1 kg

DRUGS (2)
  1. ALTEPLASE [Suspect]
     Indication: ISCHAEMIC STROKE
     Dosage: 90MG ONCE IV ONE TIME DOSE
     Route: 042
     Dates: start: 20100315, end: 20100315
  2. LISINOPRIL [Suspect]
     Indication: HYPERTENSION
     Dosage: 40MG TWICE A DAY PO UNKNOWN DURATION
     Route: 048

REACTIONS (9)
  - ANGIOEDEMA [None]
  - BLOOD PRESSURE SYSTOLIC INCREASED [None]
  - BODY TEMPERATURE DECREASED [None]
  - DRUG HYPERSENSITIVITY [None]
  - DYSPHONIA [None]
  - HEMIPLEGIA [None]
  - ISCHAEMIC STROKE [None]
  - OROPHARYNGEAL PAIN [None]
  - SENSORY LOSS [None]
